FAERS Safety Report 9556296 (Version 1)
Quarter: 2013Q3

REPORT INFORMATION
  Report Type: Spontaneous
  Country: US (occurrence: None)
  Receive Date: 20130815
  Receipt Date: 20130815
  Transmission Date: 20140515
  Serious: Yes (Hospitalization, Other)
  Sender: FDA-Public Use
  Company Number: ADR-2013-00427

PATIENT
  Age: 57 Year
  Sex: Female

DRUGS (1)
  1. LIORESAL INTRATHECAL (BACLOFEN INJECTION) 2000 MCG/ML [Suspect]
     Indication: MUSCLE SPASTICITY

REACTIONS (5)
  - Malaise [None]
  - Nausea [None]
  - Muscle spasms [None]
  - Asthenia [None]
  - Unevaluable event [None]
